FAERS Safety Report 19580530 (Version 1)
Quarter: 2021Q3

REPORT INFORMATION
  Report Type: Spontaneous
  Country: CN (occurrence: CN)
  Receive Date: 20210719
  Receipt Date: 20210719
  Transmission Date: 20211014
  Serious: Yes (Life-Threatening, Other)
  Sender: FDA-Public Use
  Company Number: CN-PURDUE-USA-2021-0276721

PATIENT
  Age: 67 Year
  Sex: Male
  Weight: 46 kg

DRUGS (2)
  1. OXYCONTIN [Suspect]
     Active Substance: OXYCODONE HYDROCHLORIDE
     Indication: CANCER PAIN
     Dosage: 120 MG, Q12H
     Route: 048
     Dates: start: 20210702, end: 20210702
  2. OXYCONTIN [Suspect]
     Active Substance: OXYCODONE HYDROCHLORIDE
     Dosage: 80 MG, Q12H
     Route: 048

REACTIONS (7)
  - Unresponsive to stimuli [Recovering/Resolving]
  - Hypotension [Unknown]
  - Breakthrough pain [Unknown]
  - Toxicity to various agents [Unknown]
  - Somnolence [Recovered/Resolved]
  - Respiratory depression [Recovered/Resolved]
  - Tachycardia [Unknown]

NARRATIVE: CASE EVENT DATE: 20210702
